FAERS Safety Report 15447751 (Version 1)
Quarter: 2018Q3

REPORT INFORMATION
  Report Type: Spontaneous
  Country: US (occurrence: US)
  Receive Date: 20180928
  Receipt Date: 20180928
  Transmission Date: 20181010
  Serious: No
  Sender: FDA-Public Use
  Company Number: US-AMGEN-USASP2018119508

PATIENT
  Age: 62 Year
  Sex: Female

DRUGS (3)
  1. PROLIA [Suspect]
     Active Substance: DENOSUMAB
     Indication: OSTEOPOROSIS POSTMENOPAUSAL
     Dosage: UNK
     Route: 065
  2. FOSAMAX [Concomitant]
     Active Substance: ALENDRONATE SODIUM
     Dosage: UNK
     Dates: start: 2018
  3. ACTONEL [Concomitant]
     Active Substance: RISEDRONATE SODIUM

REACTIONS (5)
  - Toothache [Recovered/Resolved]
  - Tooth repair [Unknown]
  - Pain in jaw [Recovered/Resolved]
  - Sleep disorder due to a general medical condition [Unknown]
  - Inappropriate schedule of drug administration [Unknown]
